FAERS Safety Report 16424237 (Version 1)
Quarter: 2019Q2

REPORT INFORMATION
  Report Type: Spontaneous
  Country: US (occurrence: US)
  Receive Date: 20190613
  Receipt Date: 20190613
  Transmission Date: 20190711
  Serious: Yes (Hospitalization)
  Sender: FDA-Public Use
  Company Number: US-ROCHE-2336299

PATIENT
  Age: 87 Year
  Sex: Female

DRUGS (1)
  1. XOLAIR [Suspect]
     Active Substance: OMALIZUMAB
     Indication: CHRONIC SPONTANEOUS URTICARIA
     Dosage: ONGOING:-NO, BENEATH THE SKIN, USUALLY VIA INJECTION
     Route: 058
     Dates: start: 20190101, end: 20190601

REACTIONS (1)
  - Pulmonary embolism [Recovered/Resolved]
